FAERS Safety Report 13776639 (Version 1)
Quarter: 2017Q3

REPORT INFORMATION
  Report Type: Spontaneous
  Country: US (occurrence: US)
  Receive Date: 20170721
  Receipt Date: 20170721
  Transmission Date: 20171127
  Serious: Yes (Hospitalization)
  Sender: FDA-Public Use
  Company Number: None

PATIENT
  Age: 5 Year
  Sex: Male
  Weight: 16.3 kg

DRUGS (13)
  1. DOXORUBICIN HYDROCHLORIDE. [Suspect]
     Active Substance: DOXORUBICIN HYDROCHLORIDE
     Dates: end: 20140919
  2. MERCAPTOPURINE. [Suspect]
     Active Substance: MERCAPTOPURINE
     Dates: end: 20170125
  3. THIOGUANINE (6-TG) [Suspect]
     Active Substance: THIOGUANINE ANHYDROUS
     Dates: end: 20141021
  4. CYTARABINE. [Suspect]
     Active Substance: CYTARABINE
     Dates: end: 20141018
  5. ONCASPAR [Suspect]
     Active Substance: PEGASPARGASE
     Dates: end: 20141202
  6. VINCRISTINE SULFATE. [Suspect]
     Active Substance: VINCRISTINE SULFATE
     Dates: end: 20170104
  7. DEXAMETHASONE. [Suspect]
     Active Substance: DEXAMETHASONE
     Dates: end: 20140926
  8. CLOLAR [Suspect]
     Active Substance: CLOFARABINE
     Dates: end: 20140520
  9. ETOPOSIDE (VP-16) [Suspect]
     Active Substance: ETOPOSIDE
     Dates: end: 20140520
  10. CYCLOPHOSPHAMIDE. [Suspect]
     Active Substance: CYCLOPHOSPHAMIDE
     Dates: end: 20141008
  11. DAUNORUBICIN [Suspect]
     Active Substance: DAUNORUBICIN
     Dates: end: 20140404
  12. METHOTREXATE. [Suspect]
     Active Substance: METHOTREXATE
     Dates: end: 20161109
  13. PREDNISONE. [Suspect]
     Active Substance: PREDNISONE
     Dates: end: 20170108

REACTIONS (11)
  - Oesophageal candidiasis [None]
  - Feeding intolerance [None]
  - Respiratory failure [None]
  - Hypercapnia [None]
  - Weight decreased [None]
  - Parainfluenzae virus infection [None]
  - Gastrooesophageal reflux disease [None]
  - Decreased appetite [None]
  - Vomiting [None]
  - Hypoxia [None]
  - Pneumocystis jirovecii pneumonia [None]

NARRATIVE: CASE EVENT DATE: 20170130
